FAERS Safety Report 5180159-1 (Version None)
Quarter: 2006Q4

REPORT INFORMATION
  Report Type: 
  Country: None (occurrence: None)
  Receive Date: 20061212
  Receipt Date: 20061201
  Transmission Date: 20070319
  Serious: Yes (Other)
  Sender: FDA-Public Use
  Company Number: 2006144380

PATIENT
  Sex: Male

DRUGS (3)
  1. BENYLIN DM D-E EXTRA STRENGTH [Suspect]
     Dosage: 1/2 BOTTLE IN 24 HOUR PERIOD, ORAL
     Route: 048
  2. ETHANOL (ETHANOL) [Suspect]
     Dosage: ORAL
     Route: 048
  3. ANALGESICS (ANALGESICS) [Suspect]
     Dosage: ORAL
     Route: 048

REACTIONS (5)
  - ALCOHOL USE [None]
  - DIZZINESS [None]
  - INCORRECT DOSE ADMINISTERED [None]
  - OVERDOSE [None]
  - WRONG TECHNIQUE IN DRUG USAGE PROCESS [None]
